FAERS Safety Report 8162222-6 (Version None)
Quarter: 2012Q1

REPORT INFORMATION
  Report Type: 
  Country: None (occurrence: None)
  Receive Date: 20120224
  Receipt Date: 20111012
  Transmission Date: 20120608
  Serious: No
  Sender: FDA-Public Use
  Company Number: US-BRISTOL-MYERS SQUIBB COMPANY-16156556

PATIENT
  Age: 92 Year
  Sex: Female
  Weight: 93 kg

DRUGS (3)
  1. GLUCOPHAGE [Suspect]
     Indication: DIABETES MELLITUS
  2. AVANDIA [Suspect]
  3. GLUCOTROL [Concomitant]
     Dates: start: 20100101

REACTIONS (2)
  - MALAISE [None]
  - DRUG INTOLERANCE [None]
